FAERS Safety Report 4437323-6 (Version None)
Quarter: 2004Q3

REPORT INFORMATION
  Report Type: 
  Country: None (occurrence: None)
  Receive Date: 20040726
  Receipt Date: 20040518
  Transmission Date: 20050211
  Serious: No
  Sender: FDA-Public Use
  Company Number: USA040363640

PATIENT
  Age: 79 Year
  Sex: Female
  Weight: 64 kg

DRUGS (1)
  1. FORTEO [Suspect]
     Indication: OSTEOPOROSIS
     Dosage: 20 UG/L DAY
     Dates: start: 20040325

REACTIONS (9)
  - BALANCE DISORDER [None]
  - BONE PAIN [None]
  - DIZZINESS [None]
  - DRY MOUTH [None]
  - GASTRIC DISORDER [None]
  - GLAUCOMA [None]
  - HEAD DISCOMFORT [None]
  - KERATOCONJUNCTIVITIS SICCA [None]
  - VISUAL ACUITY REDUCED [None]
